FAERS Safety Report 14497672 (Version 1)
Quarter: 2018Q1

REPORT INFORMATION
  Report Type: Spontaneous
  Country: US (occurrence: US)
  Receive Date: 20180207
  Receipt Date: 20180207
  Transmission Date: 20180509
  Serious: Yes (Hospitalization, Other)
  Sender: FDA-Public Use
  Company Number: PHHY2015US132422

PATIENT
  Age: 67 Year
  Sex: Female

DRUGS (3)
  1. ONDANSETRON HYDROCHLORIDE. [Suspect]
     Active Substance: ONDANSETRON HYDROCHLORIDE
     Indication: NAUSEA
  2. ONDANSETRON HYDROCHLORIDE. [Suspect]
     Active Substance: ONDANSETRON HYDROCHLORIDE
     Indication: VOMITING
     Dosage: 8 MG, UNK
     Route: 048
  3. ACETAMINOPHEN AND CODEINE [Concomitant]
     Active Substance: ACETAMINOPHEN\CODEINE PHOSPHATE
     Indication: BONE DISORDER
     Dosage: UNK
     Route: 065

REACTIONS (8)
  - Mental status changes [Recovered/Resolved]
  - Pyrexia [Unknown]
  - Toxic encephalopathy [Unknown]
  - Agitation [Unknown]
  - Dry mouth [Unknown]
  - Dysarthria [Unknown]
  - Dyskinesia [Unknown]
  - Confusional state [Unknown]
